FAERS Safety Report 21631977 (Version 3)
Quarter: 2022Q4

REPORT INFORMATION
  Report Type: Report from Study
  Country: US (occurrence: US)
  Receive Date: 20221123
  Receipt Date: 20221201
  Transmission Date: 20230112
  Serious: Yes (Death, Hospitalization, Other)
  Sender: FDA-Public Use
  Company Number: US-AUROBINDO-AUR-APL-2022-049427

PATIENT
  Age: 65 Year
  Sex: Male
  Weight: 76.2 kg

DRUGS (3)
  1. BELINOSTAT [Suspect]
     Active Substance: BELINOSTAT
     Indication: Pancreatic carcinoma metastatic
     Dosage: 1000 MILLIGRAM D1-5 OF 21 DAY CYCLES
     Route: 042
     Dates: start: 20220919
  2. TALAZOPARIB [Suspect]
     Active Substance: TALAZOPARIB
     Indication: Pancreatic carcinoma metastatic
     Dosage: 1 MILLIGRAM, ONCE A DAY
     Route: 048
     Dates: start: 20220919, end: 20221104
  3. TALAZOPARIB [Suspect]
     Active Substance: TALAZOPARIB
     Dosage: 1 MILLIGRAM, ONCE A DAY
     Route: 048
     Dates: start: 20220919, end: 20221115

REACTIONS (3)
  - Disease progression [Fatal]
  - Pneumonia [Not Recovered/Not Resolved]
  - Embolism [Not Recovered/Not Resolved]

NARRATIVE: CASE EVENT DATE: 20221105
